FAERS Safety Report 6956554-4 (Version None)
Quarter: 2010Q3

REPORT INFORMATION
  Report Type: 
  Country: None (occurrence: None)
  Receive Date: 20100826
  Receipt Date: 20100823
  Transmission Date: 20110219
  Serious: Yes (Other)
  Sender: FDA-Public Use
  Company Number: 20109024

PATIENT
  Sex: Female

DRUGS (1)
  1. LIORESAL [Suspect]
     Indication: MUSCLE SPASTICITY
     Dosage: 199.9 MCG, DAILY, INTRATHECAL
     Route: 037

REACTIONS (3)
  - HYPERTONIA [None]
  - IMPLANT SITE INFECTION [None]
  - IMPLANT SITE OEDEMA [None]
